FAERS Safety Report 5614667-3 (Version None)
Quarter: 2008Q1

REPORT INFORMATION
  Report Type: 
  Country: None (occurrence: None)
  Receive Date: 20080131
  Receipt Date: 20080123
  Transmission Date: 20080703
  Serious: Yes (Hospitalization)
  Sender: FDA-Public Use
  Company Number: 2008S1000018

PATIENT
  Age: 62 Year
  Sex: Male
  Weight: 117.9352 kg

DRUGS (5)
  1. SORIATANE [Suspect]
     Indication: PSORIASIS
     Dosage: 25 MG; QD; PO
     Route: 048
     Dates: start: 20061201
  2. LIPITOR [Suspect]
     Indication: BLOOD CHOLESTEROL INCREASED
     Dosage: ; PO
     Route: 048
     Dates: start: 20070701
  3. LIDEX [Concomitant]
  4. PREVACID [Concomitant]
  5. VITAMIN CAP [Concomitant]

REACTIONS (6)
  - BILE DUCT OBSTRUCTION [None]
  - CHOLELITHIASIS [None]
  - HEADACHE [None]
  - RASH MACULAR [None]
  - SKIN DISORDER [None]
  - SKIN INFLAMMATION [None]
